FAERS Safety Report 16047168 (Version 1)
Quarter: 2019Q1

REPORT INFORMATION
  Report Type: Spontaneous
  Country: US (occurrence: US)
  Receive Date: 20190307
  Receipt Date: 20190307
  Transmission Date: 20190418
  Serious: Yes (Other)
  Sender: FDA-Public Use
  Company Number: US-COOPERSURGICAL, INC.-US-2019CPS000627

PATIENT

DRUGS (1)
  1. PARAGARD T 380A [Suspect]
     Active Substance: COPPER
     Indication: PRODUCT USED FOR UNKNOWN INDICATION
     Route: 015

REACTIONS (8)
  - Salpingectomy [Unknown]
  - Hysterectomy [Unknown]
  - Urinary tract infection [Unknown]
  - Device material issue [Unknown]
  - Pain [Unknown]
  - Device breakage [Unknown]
  - Adverse event [Unknown]
  - Foreign body in urogenital tract [Unknown]
